FAERS Safety Report 16393961 (Version 1)
Quarter: 2019Q2

REPORT INFORMATION
  Report Type: Spontaneous
  Country: US (occurrence: US)
  Receive Date: 20190605
  Receipt Date: 20190605
  Transmission Date: 20190711
  Serious: No
  Sender: FDA-Public Use
  Company Number: US-GLAXOSMITHKLINE-US2019AMR071540

PATIENT

DRUGS (1)
  1. ATOVAQUONE. [Suspect]
     Active Substance: ATOVAQUONE
     Indication: BABESIOSIS
     Dosage: UNK
     Route: 065

REACTIONS (1)
  - Drug resistance [Unknown]
